FAERS Safety Report 5421662-6 (Version None)
Quarter: 2007Q3

REPORT INFORMATION
  Report Type: 
  Country: None (occurrence: None)
  Receive Date: 20070724
  Receipt Date: 20060824
  Transmission Date: 20080115
  Serious: Yes (Other)
  Sender: FDA-Public Use
  Company Number: 06-000910

PATIENT
  Age: 62 Year
  Sex: Female
  Weight: 63.5 kg

DRUGS (4)
  1. FEMHRT [Suspect]
     Indication: MENOPAUSAL SYMPTOMS
     Dosage: 1 MG/5 MCG, QD, ORAL
     Route: 048
     Dates: start: 20020101
  2. PREMARIN [Suspect]
     Indication: MENOPAUSAL SYMPTOMS
     Dosage: ORAL
     Route: 048
     Dates: start: 19990101, end: 20020101
  3. CELEBREX [Concomitant]
  4. TRAM/ATAP [Concomitant]

REACTIONS (2)
  - BREAST CANCER [None]
  - METRORRHAGIA [None]
